FAERS Safety Report 23697854 (Version 4)
Quarter: 2024Q2

REPORT INFORMATION
  Report Type: Report from Study
  Country: US (occurrence: US)
  Receive Date: 20240402
  Receipt Date: 20240502
  Transmission Date: 20240716
  Serious: Yes (Hospitalization, Other)
  Sender: FDA-Public Use
  Company Number: US-E2BLSMVVAL-CLI/USA/24/0005035

PATIENT
  Age: 41 Year
  Sex: Female

DRUGS (1)
  1. ACCUTANE [Suspect]
     Active Substance: ISOTRETINOIN
     Indication: Acne
     Route: 065
     Dates: start: 20240219, end: 20240321

REACTIONS (7)
  - Foot operation [Recovered/Resolved]
  - Exposure during pregnancy [Unknown]
  - Xerosis [Unknown]
  - Papule [Unknown]
  - Post inflammatory pigmentation change [Unknown]
  - Macule [Unknown]
  - Acne [Unknown]

NARRATIVE: CASE EVENT DATE: 20240222
